FAERS Safety Report 5279470-5 (Version None)
Quarter: 2007Q1

REPORT INFORMATION
  Report Type: 
  Country: None (occurrence: None)
  Receive Date: 20070328
  Receipt Date: 20070319
  Transmission Date: 20070707
  Serious: Yes (Hospitalization)
  Sender: FDA-Public Use
  Company Number: JP-PFIZER INC-2007013728

PATIENT
  Age: 43 Year
  Sex: Male

DRUGS (3)
  1. FLUCAM [Suspect]
     Indication: PHARYNGITIS
     Route: 048
     Dates: start: 20070206, end: 20070206
  2. LOXONIN [Suspect]
     Indication: PHARYNGITIS
     Route: 048
     Dates: start: 20070131, end: 20070208
  3. MEIACT [Suspect]
     Indication: PHARYNGITIS
     Route: 048
     Dates: start: 20070131, end: 20070207

REACTIONS (1)
  - LIVER DISORDER [None]
